FAERS Safety Report 8471720-7 (Version None)
Quarter: 2012Q2

REPORT INFORMATION
  Report Type: 
  Country: None (occurrence: None)
  Receive Date: 20120627
  Receipt Date: 20120620
  Transmission Date: 20120825
  Serious: Yes (Other)
  Sender: FDA-Public Use
  Company Number: FR-GLAXOSMITHKLINE-B0809421A

PATIENT
  Sex: Female

DRUGS (3)
  1. ACETYLCYSTEINE [Suspect]
     Indication: PRODUCT USED FOR UNKNOWN INDICATION
     Dosage: 1PUFF SINGLE DOSE
     Route: 045
     Dates: start: 20120523, end: 20120523
  2. VENTOLIN [Suspect]
     Indication: PRODUCT USED FOR UNKNOWN INDICATION
     Dosage: 200MCG SINGLE DOSE
     Route: 055
     Dates: start: 20120523, end: 20120523
  3. AMOXICILLIN [Suspect]
     Indication: PRODUCT USED FOR UNKNOWN INDICATION
     Dosage: 1000MG SINGLE DOSE
     Route: 048
     Dates: start: 20120523, end: 20120523

REACTIONS (7)
  - EAR DISCOMFORT [None]
  - HEADACHE [None]
  - BURNING SENSATION [None]
  - RASH [None]
  - PRURITUS [None]
  - SKIN PLAQUE [None]
  - THROAT IRRITATION [None]
